FAERS Safety Report 8881577 (Version 1)
Quarter: 2012Q4

REPORT INFORMATION
  Report Type: 
  Country: GB (occurrence: GB)
  Receive Date: 20121101
  Receipt Date: 20121101
  Transmission Date: 20130627
  Serious: Yes (Life-Threatening, Hospitalization)
  Sender: FDA-Public Use
  Company Number: GB-ROCHE-1151250

PATIENT
  Age: 72 Year

DRUGS (9)
  1. CEFTRIAXONE [Suspect]
     Indication: PANCREATITIS
     Route: 041
     Dates: start: 20110308, end: 20110308
  2. CEFUROXIME [Suspect]
     Indication: PRODUCT USED FOR UNKNOWN INDICATION
     Route: 041
     Dates: start: 20110308, end: 20110308
  3. AMOXICILLIN\CLAVULANATE POTASSIUM [Suspect]
     Indication: SEPSIS
     Route: 041
     Dates: start: 20110328, end: 20110403
  4. ERYTHROMYCIN [Suspect]
     Indication: PRODUCT USED FOR UNKNOWN INDICATION
     Route: 048
     Dates: start: 20110319, end: 20110325
  5. FLUCLOXACILLIN [Suspect]
     Indication: PRODUCT USED FOR UNKNOWN INDICATION
     Route: 048
     Dates: start: 20100908
  6. MEROPENEM [Suspect]
     Indication: PANCREATITIS NECROTISING
     Route: 041
     Dates: start: 20110309, end: 20110313
  7. METRONIDAZOLE [Suspect]
     Indication: PRODUCT USED FOR UNKNOWN INDICATION
     Route: 041
     Dates: start: 20110308, end: 20110308
  8. PIPERACILLIN/TAZOBACTAM STRAGEN [Suspect]
     Indication: PNEUMONIA
     Route: 041
     Dates: start: 20110420, end: 20110425
  9. TRIMETHOPRIM [Suspect]
     Indication: URINARY TRACT INFECTION
     Route: 048
     Dates: start: 20110305, end: 20110305

REACTIONS (1)
  - Clostridium test positive [Recovered/Resolved]
